FAERS Safety Report 5030753-3 (Version None)
Quarter: 2006Q2

REPORT INFORMATION
  Report Type: 
  Country: None (occurrence: None)
  Receive Date: 20060615
  Receipt Date: 20060606
  Transmission Date: 20061013
  Serious: Yes (Other)
  Sender: FDA-Public Use
  Company Number: 2006073794

PATIENT
  Sex: Female

DRUGS (9)
  1. ETHOSUXIMIDE [Suspect]
     Indication: EPILEPSY
     Dosage: ORAL
     Route: 048
  2. PHENOBARBITAL TAB [Concomitant]
  3. PRIMIDONE [Concomitant]
  4. SERTRALINE [Concomitant]
  5. CELEBREX [Concomitant]
  6. LOSEC (OMEPRAZOLE) [Concomitant]
  7. CAL-DE 3F (CALCIUM CARBONATE, COLECALCIFEROL) [Concomitant]
  8. ACTONEL [Concomitant]
  9. TAMOXIFEN CITRATE [Concomitant]

REACTIONS (2)
  - FRACTURE [None]
  - OSTEOPOROSIS [None]
